FAERS Safety Report 7522224-7 (Version None)
Quarter: 2011Q2

REPORT INFORMATION
  Report Type: 
  Country: None (occurrence: None)
  Receive Date: 20110603
  Receipt Date: 20110601
  Transmission Date: 20111010
  Serious: Yes (Other)
  Sender: FDA-Public Use
  Company Number: BR-PFIZER INC-2011119578

PATIENT
  Age: 60 Year
  Sex: Male
  Weight: 75 kg

DRUGS (3)
  1. PANTOPRAZOLE [Suspect]
     Indication: GASTRITIS EROSIVE
     Dosage: 40 MG, 1X/DAY
     Route: 048
     Dates: start: 20110104
  2. EUTHYROX [Concomitant]
     Indication: HYPOTHYROIDISM
     Dosage: 85 UG, UNK
     Route: 048
     Dates: start: 20070101
  3. BROMAZEPAM [Concomitant]
     Indication: ANXIETY
     Dosage: 3 MG, UNK
     Route: 048
     Dates: start: 20060101

REACTIONS (2)
  - DYSPEPSIA [None]
  - BARRETT'S OESOPHAGUS [None]
